FAERS Safety Report 14991281 (Version 2)
Quarter: 2018Q3

REPORT INFORMATION
  Report Type: Report from Study
  Country: IT (occurrence: IT)
  Receive Date: 20180608
  Receipt Date: 20180806
  Transmission Date: 20181010
  Serious: Yes (Hospitalization)
  Sender: FDA-Public Use
  Company Number: IT-MYLANLABS-2018M1038476

PATIENT
  Age: 12 Year
  Sex: Female
  Weight: 40 kg

DRUGS (1)
  1. ONDANSETRONE MYLAN GENERICS ITALIA 2 MG/ML, SOLUZIONE INIETTABILE [Suspect]
     Active Substance: ONDANSETRON
     Indication: VOMITING
     Dosage: 8 ML, TOTAL
     Route: 042
     Dates: start: 20180120, end: 20180120

REACTIONS (3)
  - Seizure [Recovering/Resolving]
  - Vertigo [Recovering/Resolving]
  - Adverse drug reaction [Recovering/Resolving]

NARRATIVE: CASE EVENT DATE: 20180120
